FAERS Safety Report 10305402 (Version 1)
Quarter: 2014Q3

REPORT INFORMATION
  Report Type: Spontaneous
  Country: JP (occurrence: JP)
  Receive Date: 20140715
  Receipt Date: 20140715
  Transmission Date: 20150326
  Serious: Yes (Life-Threatening, Other)
  Sender: FDA-Public Use
  Company Number: JP-ROCHE-1431611

PATIENT
  Age: 69 Year
  Sex: Male
  Weight: 65 kg

DRUGS (12)
  1. AMLODIN [Concomitant]
     Active Substance: AMLODIPINE BESYLATE
     Indication: HYPERTENSION
     Route: 048
  2. DAIKENCHUTO [Concomitant]
     Active Substance: HERBALS
     Indication: CONSTIPATION
     Route: 048
     Dates: start: 20130807
  3. XELODA [Suspect]
     Active Substance: CAPECITABINE
     Indication: COLON CANCER METASTATIC
     Dosage: FOR SEVEN DAYS TAKEN FOR 14 DAYS. COMPLETED CYCLE NUMBER: 5.
     Route: 048
     Dates: start: 20130911, end: 20131204
  4. ELPLAT [Concomitant]
     Active Substance: OXALIPLATIN
     Indication: COLON CANCER METASTATIC
     Route: 041
     Dates: start: 20130911, end: 20131204
  5. OLMETEC [Concomitant]
     Active Substance: OLMESARTAN MEDOXOMIL
     Indication: HYPERTENSION
     Route: 048
  6. KYTRIL [Concomitant]
     Active Substance: GRANISETRON HYDROCHLORIDE
     Indication: PROPHYLAXIS OF NAUSEA AND VOMITING
     Route: 041
     Dates: start: 20130911
  7. PYDOXAL [Concomitant]
     Active Substance: PYRIDOXAL
     Indication: PALMAR-PLANTAR ERYTHRODYSAESTHESIA SYNDROME
     Route: 048
     Dates: start: 20130911
  8. DEXART [Concomitant]
     Active Substance: DEXAMETHASONE SODIUM PHOSPHATE
     Indication: COLON CANCER METASTATIC
     Route: 042
     Dates: start: 20130911
  9. RINDERON V [Concomitant]
     Active Substance: BETAMETHASONE VALERATE
     Indication: COLON CANCER METASTATIC
     Route: 042
     Dates: start: 20130911, end: 20131204
  10. AVASTIN [Suspect]
     Active Substance: BEVACIZUMAB
     Indication: COLON CANCER METASTATIC
     Dosage: TREATMENT LINE: 1, COMPLETED TREATMENT CYCLE NMBER: 5.
     Route: 041
     Dates: start: 20130911, end: 20131204
  11. MAGMITT [Concomitant]
     Active Substance: MAGNESIUM OXIDE
     Indication: CONSTIPATION
     Route: 048
     Dates: start: 20130818
  12. HIRUDOID OINTMENT [Concomitant]
     Indication: PALMAR-PLANTAR ERYTHRODYSAESTHESIA SYNDROME
     Route: 003
     Dates: start: 20130911

REACTIONS (3)
  - Duodenal ulcer [Unknown]
  - Gastrointestinal haemorrhage [Recovered/Resolved]
  - Palmar-plantar erythrodysaesthesia syndrome [Unknown]

NARRATIVE: CASE EVENT DATE: 20140104
